FAERS Safety Report 9526842 (Version 1)
Quarter: 2013Q3

REPORT INFORMATION
  Report Type: Report from Study
  Country: US (occurrence: US)
  Receive Date: 20130916
  Receipt Date: 20130916
  Transmission Date: 20140515
  Serious: Yes (Hospitalization)
  Sender: FDA-Public Use
  Company Number: PHEH2013US018655

PATIENT
  Age: 20 Year
  Sex: Female

DRUGS (9)
  1. AFINITOR [Suspect]
     Indication: TUBEROUS SCLEROSIS
     Route: 048
     Dates: start: 201305
  2. LAMICTAL [Concomitant]
     Indication: CONVULSION
     Dosage: 450 MG, TID
  3. KEPPRA [Concomitant]
     Indication: CONVULSION
     Dosage: 3500 MG, PER DAY
  4. ONFI [Concomitant]
     Indication: CONVULSION
     Dosage: 10 MG, BID
  5. VIMPAT [Concomitant]
     Indication: CONVULSION
     Dosage: 100 MG, BID
  6. DIASTAT                            /01384601/ [Concomitant]
     Indication: CONVULSION
     Dosage: 12.5 MG, PRN
  7. FOLIC ACID [Concomitant]
     Dosage: 1 MG, QD
  8. COLACE [Concomitant]
     Indication: CONSTIPATION
  9. PROZAC [Concomitant]
     Indication: ANXIETY
     Dosage: 20 MG, TID

REACTIONS (13)
  - Gastroenteritis viral [Recovering/Resolving]
  - Diarrhoea [Recovering/Resolving]
  - Vomiting [Recovering/Resolving]
  - Pyrexia [Recovering/Resolving]
  - Abdominal discomfort [Recovering/Resolving]
  - Bacterial infection [Recovering/Resolving]
  - Chills [Recovering/Resolving]
  - Malaise [Unknown]
  - Gait disturbance [Recovered/Resolved]
  - Dental caries [Recovered/Resolved]
  - Dry mouth [Unknown]
  - Blood potassium decreased [Unknown]
  - Mouth breathing [Unknown]
